FAERS Safety Report 23532876 (Version 1)
Quarter: 2024Q1

REPORT INFORMATION
  Report Type: Spontaneous
  Country: US (occurrence: US)
  Receive Date: 20240216
  Receipt Date: 20240216
  Transmission Date: 20240410
  Serious: Yes (Hospitalization, Other)
  Sender: FDA-Public Use
  Company Number: US-ELI_LILLY_AND_COMPANY-US202402003333

PATIENT
  Age: 59 Year
  Sex: Female

DRUGS (4)
  1. EMGALITY [Suspect]
     Active Substance: GALCANEZUMAB-GNLM
     Indication: Migraine
     Dosage: UNK UNK, UNKNOWN
     Route: 065
  2. AJOVY [Suspect]
     Active Substance: FREMANEZUMAB-VFRM
     Indication: Migraine
     Dosage: UNK UNK, UNKNOWN
     Route: 065
  3. UBRELVY [Concomitant]
     Active Substance: UBROGEPANT
     Indication: Migraine
     Dosage: UNK UNK, UNKNOWN
     Route: 065
  4. IMITREX [Concomitant]
     Active Substance: SUMATRIPTAN SUCCINATE
     Indication: Migraine
     Dosage: UNK UNK, UNKNOWN
     Route: 065

REACTIONS (5)
  - Thyroid cancer [Recovered/Resolved]
  - Migraine [Recovered/Resolved]
  - Memory impairment [Recovered/Resolved]
  - Irritable bowel syndrome [Recovered/Resolved]
  - Blood glucose decreased [Recovered/Resolved]
